FAERS Safety Report 10064513 (Version 1)
Quarter: 2014Q2

REPORT INFORMATION
  Report Type: Spontaneous
  Country: CN (occurrence: None)
  Receive Date: 20140404
  Receipt Date: 20140404
  Transmission Date: 20141212
  Serious: Yes (Other)
  Sender: FDA-Public Use
  Company Number: DAV-AE-MTX-14-09

PATIENT
  Age: 53 Year
  Sex: Male

DRUGS (3)
  1. METHOTREXATE [Suspect]
     Indication: JUVENILE IDIOPATHIC ARTHRITIS
  2. PREDNISONE 5-60MG/DAY [Concomitant]
  3. DEXAMETHASONE 5 MG/DAY [Concomitant]

REACTIONS (20)
  - Pyrexia [None]
  - Headache [None]
  - Hemiplegia [None]
  - Loss of consciousness [None]
  - Coma [None]
  - Mental status changes [None]
  - Dizziness [None]
  - Dysphagia [None]
  - Cyanosis [None]
  - Epistaxis [None]
  - Diarrhoea [None]
  - Abdominal pain [None]
  - Vomiting [None]
  - Mouth ulceration [None]
  - Hepatitis [None]
  - Septic shock [None]
  - Meningitis [None]
  - Respiratory failure [None]
  - Listeriosis [None]
  - Pneumonia staphylococcal [None]
